FAERS Safety Report 6227685-1 (Version None)
Quarter: 2009Q2

REPORT INFORMATION
  Report Type: 
  Country: None (occurrence: None)
  Receive Date: 20090612
  Receipt Date: 20090605
  Transmission Date: 20091009
  Serious: Yes (Hospitalization)
  Sender: FDA-Public Use
  Company Number: PHHO2009US07171

PATIENT
  Age: 66 Year
  Sex: Female
  Weight: 57.2 kg

DRUGS (13)
  1. RAD 666 RAD+TAB [Suspect]
     Indication: MULTIPLE MYELOMA
     Dosage: 5 MG/DAY
     Route: 048
     Dates: start: 20090421, end: 20090602
  2. REVLIMID [Suspect]
     Indication: MULTIPLE MYELOMA
     Dosage: 15 MG/DAY
     Route: 048
     Dates: start: 20090421, end: 20090602
  3. LOVENOX [Concomitant]
  4. BACTRIM [Concomitant]
  5. ACYCLOVIR [Concomitant]
  6. FLUTICASONE [Concomitant]
  7. GABAPENTIN [Concomitant]
  8. OMEPRAZOLE [Concomitant]
  9. AUGMENTIN [Concomitant]
  10. LOMOTIL [Concomitant]
  11. ALBUTEROL [Concomitant]
  12. LEUCOVORIN CALCIUM [Concomitant]
  13. LEVOTHYROXINE [Concomitant]

REACTIONS (8)
  - ABDOMINAL PAIN [None]
  - CHILLS [None]
  - FEBRILE NEUTROPENIA [None]
  - NAUSEA [None]
  - NEUTROPHIL COUNT DECREASED [None]
  - PYREXIA [None]
  - THROMBOCYTOPENIA [None]
  - VOMITING [None]
